FAERS Safety Report 5339479-X (Version None)
Quarter: 2007Q2

REPORT INFORMATION
  Report Type: 
  Country: None (occurrence: None)
  Receive Date: 20070525
  Receipt Date: 20070509
  Transmission Date: 20071010
  Serious: Yes (Disabling)
  Sender: FDA-Public Use
  Company Number: 2007000811

PATIENT
  Age: 70 Year
  Sex: Female

DRUGS (1)
  1. MACUGEN [Suspect]
     Indication: MACULAR DEGENERATION
     Dosage: INTRA-VITREAL
     Dates: start: 20060601

REACTIONS (1)
  - RETINAL PIGMENT EPITHELIOPATHY [None]
